FAERS Safety Report 6971512-1 (Version None)
Quarter: 2010Q3

REPORT INFORMATION
  Report Type: 
  Country: None (occurrence: None)
  Receive Date: 20100903
  Receipt Date: 20100819
  Transmission Date: 20110219
  Serious: Yes (Other)
  Sender: FDA-Public Use
  Company Number: AMAG201000330

PATIENT
  Age: 78 Year
  Sex: Female
  Weight: 61.2 kg

DRUGS (2)
  1. FERAHEME [Suspect]
     Indication: GASTRIC BYPASS
     Dosage: 510 MG, INTRAVENOUS
     Route: 042
     Dates: start: 20100810, end: 20100810
  2. FERAHEME [Suspect]
     Indication: IRON DEFICIENCY ANAEMIA
     Dosage: 510 MG, INTRAVENOUS
     Route: 042
     Dates: start: 20100810, end: 20100810

REACTIONS (3)
  - CHEST PAIN [None]
  - DRUG HYPERSENSITIVITY [None]
  - UNRESPONSIVE TO STIMULI [None]
